FAERS Safety Report 9709316 (Version 2)
Quarter: 2013Q4

REPORT INFORMATION
  Report Type: Spontaneous
  Country: FR (occurrence: FR)
  Receive Date: 20131125
  Receipt Date: 20131125
  Transmission Date: 20140711
  Serious: No
  Sender: FDA-Public Use
  Company Number: FR-BMSGILMSD-2013-0085650

PATIENT
  Age: 35 Year
  Sex: Male
  Weight: 61 kg

DRUGS (3)
  1. ATRIPLA [Suspect]
     Indication: HIV INFECTION
     Dosage: 1 DF, UNK
     Route: 048
     Dates: start: 20130701
  2. COMBIVIR [Concomitant]
  3. SUSTIVA [Concomitant]

REACTIONS (1)
  - Transaminases increased [Not Recovered/Not Resolved]
